FAERS Safety Report 5261836-0 (Version None)
Quarter: 2007Q1

REPORT INFORMATION
  Report Type: 
  Country: None (occurrence: None)
  Receive Date: 20070310
  Receipt Date: 20070228
  Transmission Date: 20070707
  Serious: Yes (Other)
  Sender: FDA-Public Use
  Company Number: 2006UW22201

PATIENT
  Sex: Female
  Weight: 61.4 kg

DRUGS (11)
  1. SEROQUEL [Suspect]
     Indication: DEPRESSION
     Route: 048
  2. SEROQUEL [Suspect]
     Indication: SLEEP DISORDER
     Route: 048
  3. DEXATRIM [Concomitant]
     Indication: WEIGHT CONTROL
     Dates: start: 19800101, end: 19870101
  4. ABILIFY [Concomitant]
     Dates: start: 20050101, end: 20060101
  5. GEODON [Concomitant]
     Dates: start: 19990101, end: 20000101
  6. RISPERDAL [Concomitant]
     Dates: start: 19940101
  7. CYMBATTA [Concomitant]
  8. TEMAZEPAM [Concomitant]
  9. TRAZODONE HCL [Concomitant]
  10. ADIVAN [Concomitant]
  11. MARIJUANA [Concomitant]
     Dosage: OCCASIONAL USE

REACTIONS (1)
  - KETOACIDOSIS [None]
